FAERS Safety Report 20206664 (Version 2)
Quarter: 2022Q1

REPORT INFORMATION
  Report Type: Report from Study
  Country: US (occurrence: US)
  Receive Date: 20211220
  Receipt Date: 20220112
  Transmission Date: 20220423
  Serious: Yes (Death, Hospitalization, Other)
  Sender: FDA-Public Use
  Company Number: US-NOVARTISPH-NVSC2021US284683

PATIENT
  Sex: Male

DRUGS (2)
  1. TABRECTA [Suspect]
     Active Substance: CAPMATINIB
     Indication: Lung neoplasm malignant
     Dosage: 400 MG, BID
     Route: 048
  2. TABRECTA [Suspect]
     Active Substance: CAPMATINIB
     Dosage: 0.5 DOSAGE FORM (HALF DOSE OF 1 TABLET, TWICE A DAY)
     Route: 065

REACTIONS (5)
  - Death [Fatal]
  - Pulmonary thrombosis [Unknown]
  - Asthenia [Unknown]
  - Pyrexia [Unknown]
  - Wrong technique in product usage process [Unknown]
